FAERS Safety Report 5937640-4 (Version None)
Quarter: 2008Q4

REPORT INFORMATION
  Report Type: 
  Country: None (occurrence: None)
  Receive Date: 20081031
  Receipt Date: 20081027
  Transmission Date: 20090506
  Serious: Yes (Other)
  Sender: FDA-Public Use
  Company Number: IT-BRISTOL-MYERS SQUIBB COMPANY-14384010

PATIENT
  Age: 50 Year
  Sex: Male

DRUGS (6)
  1. DIDANOSINE [Suspect]
     Indication: HIV INFECTION
     Dosage: STOPPED ON NOV 2003 RESTARTED: JUNE 2004 WITH 400 MG/DAY.
     Dates: start: 19970101
  2. STAVUDINE [Suspect]
     Indication: HIV INFECTION
     Dosage: STOPPED ON NOV 2003 RESTARTED: JUNE 2004
     Dates: start: 19970101
  3. LAMIVUDINE [Suspect]
     Indication: HIV INFECTION
     Dosage: STOPPED ON NOV 2003 RESTARTED: JUNE 2004
     Dates: start: 20030701, end: 20031101
  4. TENOFOVIR [Suspect]
     Indication: HIV INFECTION
     Dates: start: 20030701, end: 20031101
  5. PEGINTERFERON ALFA-2B [Suspect]
     Indication: HEPATITIS C
     Dosage: IN SEPTEMBER 2004, ANTI-HCV THERAPY WAS INTERRUPTED
  6. RIBAVIRIN [Suspect]
     Indication: HEPATITIS C
     Dosage: TWO TABLETS IN THE MORNING AND THREE IN THE EVENING. SEPTEMBER 2004: INTERRUPTED

REACTIONS (1)
  - LICHENOID KERATOSIS [None]
